FAERS Safety Report 7782579-5 (Version None)
Quarter: 2011Q3

REPORT INFORMATION
  Report Type: 
  Country: None (occurrence: None)
  Receive Date: 20110928
  Receipt Date: 20110919
  Transmission Date: 20111222
  Serious: Yes (Other)
  Sender: FDA-Public Use
  Company Number: US-US-EMD SERONO, INC.-7084355

PATIENT
  Sex: Female

DRUGS (2)
  1. ALLERGY SHOTS [Concomitant]
  2. REBIF [Suspect]
     Indication: PRODUCT USED FOR UNKNOWN INDICATION
     Route: 058
     Dates: start: 20050325

REACTIONS (4)
  - DECREASED IMMUNE RESPONSIVENESS [None]
  - SCAR [None]
  - HIP ARTHROPLASTY [None]
  - INCISION SITE CELLULITIS [None]
